FAERS Safety Report 13423049 (Version 2)
Quarter: 2017Q3

REPORT INFORMATION
  Report Type: Report from Study
  Country: PL (occurrence: PL)
  Receive Date: 20170410
  Receipt Date: 20170703
  Transmission Date: 20171127
  Serious: Yes (Hospitalization)
  Sender: FDA-Public Use
  Company Number: PL-ROCHE-1874222

PATIENT
  Age: 51 Year
  Sex: Female
  Weight: 62 kg

DRUGS (27)
  1. AMERTIL [Concomitant]
     Indication: PREMEDICATION
     Dosage: TAKEN PRIOR TO BLINDED/OPEN LABEL OCRELIZUMAB
     Route: 065
     Dates: start: 20120925, end: 20160627
  2. METHYLPREDNISOLONE. [Concomitant]
     Active Substance: METHYLPREDNISOLONE
     Indication: PREMEDICATION
     Dosage: TAKEN PRIOR TO BLINDED/OPEN LABEL OCRELIZUMAB
     Route: 065
     Dates: start: 20120925, end: 20160627
  3. KETONAL (POLAND) [Concomitant]
     Route: 065
     Dates: start: 20161210, end: 20161210
  4. LAKCID [Concomitant]
     Active Substance: LACTOBACILLUS ACIDOPHILUS
     Route: 065
     Dates: start: 20121227, end: 20130107
  5. DITROPAN [Concomitant]
     Active Substance: OXYBUTYNIN CHLORIDE
     Route: 065
     Dates: start: 20120816, end: 20150601
  6. PLACEBO [Suspect]
     Active Substance: UNSPECIFIED INGREDIENT
     Indication: RELAPSING-REMITTING MULTIPLE SCLEROSIS
     Dosage: SUBSEQUENT DOSES?WEEK 2 09/OCT/2012?WEEK 24 12/MAR/2013?WEEK 48 27/AUG/2013?WEEK 72 11/FEB/2014
     Route: 042
     Dates: start: 20120925, end: 20140211
  7. KETONAL (POLAND) [Concomitant]
     Route: 065
     Dates: start: 20140729, end: 20140830
  8. BETASERC [Concomitant]
     Active Substance: BETAHISTINE
     Route: 065
     Dates: start: 20120816, end: 20160520
  9. FORCID [Concomitant]
     Route: 065
     Dates: start: 20121227, end: 20130107
  10. CITABAX [Concomitant]
     Active Substance: CITALOPRAM HYDROBROMIDE
     Route: 065
     Dates: start: 20130321, end: 20141117
  11. WELLBUTRIN [Concomitant]
     Active Substance: BUPROPION HYDROCHLORIDE
     Route: 065
     Dates: start: 20130920, end: 20140131
  12. DORMICUM (UNSPEC) [Concomitant]
     Route: 065
     Dates: start: 20161207, end: 20161207
  13. PARACETAMOL [Concomitant]
     Active Substance: ACETAMINOPHEN
     Route: 065
     Dates: start: 20161207, end: 20161209
  14. KETONAL (POLAND) [Concomitant]
     Route: 065
     Dates: start: 20161207, end: 20161208
  15. ORTHO EVRA [Concomitant]
     Active Substance: ETHINYL ESTRADIOL\NORELGESTROMIN
     Indication: CONTRACEPTION
     Dosage: PLASTER
     Route: 065
     Dates: start: 20121001, end: 20161205
  16. ESCITALOPRAMUM [Concomitant]
     Route: 065
     Dates: start: 20141118
  17. TRAMADOLI HYDROCHLORIDUM [Concomitant]
     Route: 065
     Dates: start: 20161208, end: 20161208
  18. PARACETAMOL [Concomitant]
     Active Substance: ACETAMINOPHEN
     Route: 065
     Dates: start: 20140708, end: 20140729
  19. KETONAL (POLAND) [Concomitant]
     Route: 065
     Dates: start: 20120706, end: 20120710
  20. UROFLOW (POLAND) [Concomitant]
     Route: 065
     Dates: start: 20160602
  21. OCRELIZUMAB. [Suspect]
     Active Substance: OCRELIZUMAB
     Indication: RELAPSING-REMITTING MULTIPLE SCLEROSIS
     Dosage: WEEK 2 08/SEP/2014?WEEK 24 06/FEB/2015?WEEK 48 30/JUL/2015?WEEK 72 21/JAN/2016?WEEK 96 27/JUN/2016?D
     Route: 042
     Dates: start: 20140826
  22. PARACETAMOL [Concomitant]
     Active Substance: ACETAMINOPHEN
     Indication: PREMEDICATION
     Dosage: TAKEN PRIOR TO BLINDED/OPEN LABEL OCRELIZUMAB
     Route: 065
     Dates: start: 20120925, end: 20160627
  23. CITAL (POLAND) [Concomitant]
     Route: 065
     Dates: start: 20120910, end: 20130321
  24. PYRALGINUM [Concomitant]
     Route: 065
     Dates: start: 20121227, end: 20121229
  25. ZOMIREN [Concomitant]
     Route: 065
     Dates: start: 20120910, end: 20130321
  26. CEFUROXIME. [Concomitant]
     Active Substance: CEFUROXIME
     Route: 065
     Dates: start: 20161207, end: 20161207
  27. INTERFERON BETA-1A [Suspect]
     Active Substance: INTERFERON BETA-1A
     Indication: RELAPSING-REMITTING MULTIPLE SCLEROSIS
     Dosage: DOSE MODIFICATION AS SPECIFIED IN THE PROTOCOL
     Route: 058
     Dates: start: 20120926, end: 20140823

REACTIONS (1)
  - Endometrial adenocarcinoma [Recovered/Resolved]

NARRATIVE: CASE EVENT DATE: 20161103
